FAERS Safety Report 16586911 (Version 2)
Quarter: 2019Q4

REPORT INFORMATION
  Report Type: Spontaneous
  Country: US (occurrence: US)
  Receive Date: 20190717
  Receipt Date: 20191018
  Transmission Date: 20200122
  Serious: No
  Sender: FDA-Public Use
  Company Number: US-SA-2019SA188582

PATIENT
  Age: 55 Year
  Sex: Female
  Weight: 133.79 kg

DRUGS (1)
  1. DUPIXENT [Suspect]
     Active Substance: DUPILUMAB
     Indication: ASTHMA
     Dosage: 300 MG, QOW
     Route: 058
     Dates: start: 20190601

REACTIONS (5)
  - Viral infection [Recovering/Resolving]
  - Erythema [Recovering/Resolving]
  - Asthma [Unknown]
  - Psoriasis [Recovering/Resolving]
  - Dyspnoea [Unknown]

NARRATIVE: CASE EVENT DATE: 2019
